FAERS Safety Report 4922610-5 (Version None)
Quarter: 2006Q1

REPORT INFORMATION
  Report Type: 
  Country: None (occurrence: None)
  Receive Date: 20060223
  Receipt Date: 20060223
  Transmission Date: 20060701
  Serious: No
  Sender: FDA-Public Use
  Company Number: None

PATIENT
  Sex: Male
  Weight: 108.8633 kg

DRUGS (3)
  1. PREVACID [Suspect]
  2. PROTONIX [Suspect]
  3. NEXIUM [Concomitant]

REACTIONS (1)
  - DRUG INEFFECTIVE [None]
